FAERS Safety Report 8428567-7 (Version None)
Quarter: 2012Q2

REPORT INFORMATION
  Report Type: 
  Country: None (occurrence: None)
  Receive Date: 20120606
  Receipt Date: 20120606
  Transmission Date: 20120825
  Serious: Yes (Other)
  Sender: FDA-Public Use
  Company Number: None

PATIENT
  Sex: Female
  Weight: 49.8957 kg

DRUGS (1)
  1. YAZ [Suspect]

REACTIONS (4)
  - PREGNANCY ON CONTRACEPTIVE [None]
  - PLATELET COUNT DECREASED [None]
  - GALLBLADDER DISORDER [None]
  - MATERNAL EXPOSURE DURING PREGNANCY [None]
